FAERS Safety Report 18728410 (Version 1)
Quarter: 2021Q1

REPORT INFORMATION
  Report Type: Spontaneous
  Country: PT (occurrence: PT)
  Receive Date: 20210112
  Receipt Date: 20210112
  Transmission Date: 20210419
  Serious: Yes (Hospitalization, Other)
  Sender: FDA-Public Use
  Company Number: PT-TEVA-2021-PT-1867576

PATIENT
  Age: 72 Year
  Sex: Female

DRUGS (11)
  1. CINNARIZINE [Concomitant]
     Active Substance: CINNARIZINE
     Dosage: 75 MILLIGRAM DAILY;
     Route: 048
  2. HUMAN BASAL INSULIN [Concomitant]
     Dosage: UNIT DOSE: 40 U/G
     Route: 042
  3. ROSUVASTATIN. [Suspect]
     Active Substance: ROSUVASTATIN
     Dosage: 20 MILLIGRAM DAILY;
     Route: 048
  4. METFORMIN [Concomitant]
     Active Substance: METFORMIN HYDROCHLORIDE
     Dosage: 2000 MILLIGRAM DAILY;
     Route: 048
  5. ACETYLSALICYLIC ACID [Concomitant]
     Active Substance: ASPIRIN
     Dosage: 150 MILLIGRAM DAILY;
     Route: 048
  6. PENTOXIFYLLINE. [Concomitant]
     Active Substance: PENTOXIFYLLINE
     Dosage: 800 MILLIGRAM DAILY;
     Route: 048
  7. HYDROXYZINE [Concomitant]
     Active Substance: HYDROXYZINE HYDROCHLORIDE
     Dosage: 25 MILLIGRAM DAILY;
     Route: 048
  8. LEVOTHYROXINE. [Concomitant]
     Active Substance: LEVOTHYROXINE
     Dosage: 25 MICROGRAM DAILY;
     Route: 048
  9. TRAMADOL WITH PARACETAMOL [Concomitant]
     Dosage: 1 DOSAGE FORMS DAILY; 1 DOSAGE FORM IS EQUAL TO TRAMADOL WITH PARACETAMOL 37,5MG/325MG
     Route: 048
  10. ATENOLOL. [Concomitant]
     Active Substance: ATENOLOL
     Dosage: 50 MILLIGRAM DAILY;
     Route: 048
  11. LANSOPRAZOLE. [Concomitant]
     Active Substance: LANSOPRAZOLE
     Dosage: 30 MILLIGRAM DAILY;
     Route: 048

REACTIONS (1)
  - Necrotising myositis [Recovered/Resolved]
